FAERS Safety Report 9354179 (Version 1)
Quarter: 2013Q2

REPORT INFORMATION
  Report Type: Spontaneous
  Country: IT (occurrence: None)
  Receive Date: 20130613
  Receipt Date: 20130613
  Transmission Date: 20140414
  Serious: Yes (Hospitalization)
  Sender: FDA-Public Use
  Company Number: AUR-APL-2013-04807

PATIENT
  Age: 70 Year
  Sex: Male

DRUGS (6)
  1. AMOXICILLIN [Suspect]
     Indication: ENDOCARDITIS PROPHYLAXIS
     Route: 048
     Dates: start: 20130510, end: 20130510
  2. COUMADIN(WARFARIN SODIUM) [Concomitant]
  3. CORDARONE(AMIODARONE HYDROCHLORIDE) [Concomitant]
  4. LOSARTAN POTASSIUM(LOSARTAN POTASSIUM) [Concomitant]
  5. FUROSEMIDE(FUROSEMIDE) [Concomitant]
  6. ACETYLSALICYLIC ACID(ACETYLSALICYLIC ACID) [Concomitant]

REACTIONS (4)
  - Anaphylactic shock [None]
  - Hypotension [None]
  - Angioedema [None]
  - Erythema [None]
